FAERS Safety Report 8771306 (Version 2)
Quarter: 2012Q4

REPORT INFORMATION
  Report Type: Report from Study
  Country: CZ (occurrence: CZ)
  Receive Date: 20120906
  Receipt Date: 20120921
  Transmission Date: 20130627
  Serious: Yes (Death, Hospitalization, Other)
  Sender: FDA-Public Use
  Company Number: PHHY2012CZ076742

PATIENT
  Age: 73 Year
  Sex: Male

DRUGS (1)
  1. CGP 57148B [Suspect]
     Indication: GASTROINTESTINAL STROMAL TUMOUR
     Dosage: 400 mg, daily

REACTIONS (9)
  - Neoplasm progression [Fatal]
  - Malignant neoplasm progression [Fatal]
  - Renal disorder [Unknown]
  - Nephropathy toxic [Recovered/Resolved]
  - Nausea [Recovered/Resolved]
  - Vomiting [Recovered/Resolved]
  - Diarrhoea [Recovered/Resolved]
  - Renal failure [Unknown]
  - Hepatic failure [Unknown]
